FAERS Safety Report 12153898 (Version 1)
Quarter: 2016Q1

REPORT INFORMATION
  Report Type: Spontaneous
  Country: US (occurrence: US)
  Receive Date: 20160307
  Receipt Date: 20160307
  Transmission Date: 20160526
  Serious: No
  Sender: FDA-Public Use
  Company Number: US-HORIZON-PEN-0084-2016

PATIENT
  Age: 69 Year
  Sex: Female

DRUGS (8)
  1. LEVOTHYROXINE. [Concomitant]
     Active Substance: LEVOTHYROXINE
  2. FUROSEMIDE. [Concomitant]
     Active Substance: FUROSEMIDE
  3. PENNSAID [Suspect]
     Active Substance: DICLOFENAC SODIUM
     Indication: NERVE INJURY
     Route: 061
     Dates: start: 201602
  4. MELOXICAM. [Concomitant]
     Active Substance: MELOXICAM
  5. LISINOPRIL. [Concomitant]
     Active Substance: LISINOPRIL
  6. BABY ASPIRIN [Concomitant]
     Active Substance: ASPIRIN
  7. PRAVASTATIN [Concomitant]
     Active Substance: PRAVASTATIN\PRAVASTATIN SODIUM
  8. ALPRAZOLAM. [Concomitant]
     Active Substance: ALPRAZOLAM

REACTIONS (2)
  - Drug dose omission [Not Recovered/Not Resolved]
  - Off label use [Not Recovered/Not Resolved]

NARRATIVE: CASE EVENT DATE: 201602
